FAERS Safety Report 6146579-3 (Version None)
Quarter: 2009Q2

REPORT INFORMATION
  Report Type: 
  Country: None (occurrence: None)
  Receive Date: 20090407
  Receipt Date: 20090326
  Transmission Date: 20091009
  Serious: Yes (Death, Hospitalization)
  Sender: FDA-Public Use
  Company Number: TR-ELI_LILLY_AND_COMPANY-TR200903007011

PATIENT
  Age: 36 Year
  Sex: Male

DRUGS (5)
  1. CYMBALTA [Suspect]
     Indication: MAJOR DEPRESSION
     Dosage: 30 MG, DAILY (1/D)
     Route: 048
     Dates: start: 20090315
  2. MONOLONG [Concomitant]
     Indication: CORONARY ARTERY DISEASE
     Dosage: 40 MG, DAILY (1/D)
     Route: 048
  3. PLAVIX [Concomitant]
     Indication: CORONARY ARTERY DISEASE
     Dosage: 75 MG, DAILY (1/D)
     Route: 048
  4. ACETYLSALICYLIC ACID [Concomitant]
     Indication: CORONARY ARTERY DISEASE
     Dosage: UNK, UNKNOWN
     Route: 048
  5. DEPAKOTE [Concomitant]
     Indication: EPILEPSY
     Dosage: 500 MG, 2/D
     Route: 048

REACTIONS (2)
  - DEATH [None]
  - GENERAL PHYSICAL HEALTH DETERIORATION [None]
